FAERS Safety Report 17475030 (Version 1)
Quarter: 2020Q1

REPORT INFORMATION
  Report Type: Report from Study
  Country: GB (occurrence: GB)
  Receive Date: 20200228
  Receipt Date: 20200228
  Transmission Date: 20200409
  Serious: Yes (Other)
  Sender: FDA-Public Use
  Company Number: GB-JNJFOC-20190735446

PATIENT
  Age: 54 Year
  Sex: Female

DRUGS (1)
  1. STELARA [Suspect]
     Active Substance: USTEKINUMAB
     Indication: CROHN^S DISEASE
     Dosage: AFTER INFUSION
     Route: 058
     Dates: start: 20190320

REACTIONS (4)
  - Crohn^s disease [Unknown]
  - Anaemia [Unknown]
  - Viral infection [Unknown]
  - Diarrhoea [Unknown]
